FAERS Safety Report 7591417-5 (Version None)
Quarter: 2011Q2

REPORT INFORMATION
  Report Type: 
  Country: None (occurrence: None)
  Receive Date: 20110630
  Receipt Date: 20110630
  Transmission Date: 20111010
  Serious: Yes (Other)
  Sender: FDA-Public Use
  Company Number: None

PATIENT
  Age: 37 Year
  Sex: Female
  Weight: 49.8957 kg

DRUGS (1)
  1. SUBOXONE [Suspect]
     Indication: DRUG DEPENDENCE
     Dosage: 1/4 MG 1-2 TIMES/DAY SL HAD TO STOP MODE OF DELIV
     Route: 060
     Dates: start: 20110510, end: 20110515

REACTIONS (4)
  - PRODUCT FORMULATION ISSUE [None]
  - STOMATITIS [None]
  - DRUG DEPENDENCE [None]
  - APHAGIA [None]
